FAERS Safety Report 5130403-1 (Version None)
Quarter: 2006Q4

REPORT INFORMATION
  Report Type: 
  Country: None (occurrence: None)
  Receive Date: 20061017
  Receipt Date: 20061017
  Transmission Date: 20070319
  Serious: Yes (Hospitalization)
  Sender: FDA-Public Use
  Company Number: None

PATIENT
  Age: 48 Year
  Sex: Male
  Weight: 75.2 kg

DRUGS (4)
  1. SERTRALINE [Suspect]
     Indication: BIPOLAR II DISORDER
     Dosage: ONCE
  2. SERTRALINE [Suspect]
     Indication: SCHIZOAFFECTIVE DISORDER
     Dosage: ONCE
  3. RISPERIDONE [Suspect]
     Indication: BIPOLAR II DISORDER
     Dosage: ONCE
  4. RISPERIDONE [Suspect]
     Indication: SCHIZOAFFECTIVE DISORDER
     Dosage: ONCE

REACTIONS (10)
  - CONSTIPATION [None]
  - DEPRESSION [None]
  - DYSPEPSIA [None]
  - HALLUCINATION, AUDITORY [None]
  - HYPERTENSION [None]
  - HYPOKALAEMIA [None]
  - MULTIPLE DRUG OVERDOSE [None]
  - PAIN [None]
  - SUICIDAL IDEATION [None]
  - VOMITING [None]
